FAERS Safety Report 9433889 (Version 1)
Quarter: 2013Q3

REPORT INFORMATION
  Report Type: Spontaneous
  Country: JP (occurrence: JP)
  Receive Date: 20130801
  Receipt Date: 20130801
  Transmission Date: 20140515
  Serious: Yes (Other)
  Sender: FDA-Public Use
  Company Number: PHHY2013JP080381

PATIENT
  Sex: Female

DRUGS (2)
  1. VALPROIC ACID [Suspect]
     Indication: EPILEPSY
     Dosage: 300 MG, UNK
  2. VALPROIC ACID [Suspect]
     Dosage: 200 MG, UNK

REACTIONS (1)
  - Gingival hypertrophy [Recovering/Resolving]
